FAERS Safety Report 21906737 (Version 1)
Quarter: 2023Q1

REPORT INFORMATION
  Report Type: Spontaneous
  Country: US (occurrence: US)
  Receive Date: 20230125
  Receipt Date: 20230125
  Transmission Date: 20230417
  Serious: Yes (Hospitalization, Other)
  Sender: FDA-Public Use
  Company Number: US-BRISTOL-MYERS SQUIBB COMPANY-2023-011127

PATIENT
  Age: 83 Year
  Sex: Female

DRUGS (1)
  1. POMALYST [Suspect]
     Active Substance: POMALIDOMIDE
     Indication: Plasma cell myeloma
     Dosage: FREQUENCY :  DAILY 21 DAYS  AND 7 DAYS OFF
     Route: 048
     Dates: start: 20210526

REACTIONS (1)
  - Calciphylaxis [Recovered/Resolved]

NARRATIVE: CASE EVENT DATE: 20230101
